FAERS Safety Report 22596268 (Version 3)
Quarter: 2023Q2

REPORT INFORMATION
  Report Type: Spontaneous
  Country: US (occurrence: US)
  Receive Date: 20230613
  Receipt Date: 20230626
  Transmission Date: 20230722
  Serious: Yes (Hospitalization)
  Sender: FDA-Public Use
  Company Number: US-SAMSUNG BIOEPIS-SB-2023-15633

PATIENT
  Age: 7 Decade
  Sex: Female

DRUGS (7)
  1. KANJINTI [Suspect]
     Active Substance: TRASTUZUMAB-ANNS
     Indication: Papillary serous endometrial carcinoma
     Dosage: 8 MG/KG; IV THROUGH PORT SITE
     Route: 042
     Dates: start: 20220818
  2. KANJINTI [Suspect]
     Active Substance: TRASTUZUMAB-ANNS
     Dosage: 4MG/KG;
     Route: 065
     Dates: start: 20220919
  3. CARBOPLATIN [Suspect]
     Active Substance: CARBOPLATIN
     Indication: Papillary serous endometrial carcinoma
     Dosage: IV THROUGH PORT SITE
     Route: 042
     Dates: start: 20220818
  4. PACLITAXEL [Suspect]
     Active Substance: PACLITAXEL
     Indication: Papillary serous endometrial carcinoma
     Dosage: IV THROUGH PORT SITE
     Route: 042
     Dates: start: 20220818
  5. ASPIRIN [Concomitant]
     Active Substance: ASPIRIN
     Indication: Product used for unknown indication
     Route: 065
  6. CHLORTHALIDONE [Concomitant]
     Active Substance: CHLORTHALIDONE
     Indication: Product used for unknown indication
     Route: 065
  7. VALSARTAN [Concomitant]
     Active Substance: VALSARTAN
     Indication: Product used for unknown indication
     Route: 065

REACTIONS (3)
  - Immune thrombocytopenia [Recovered/Resolved]
  - Anaemia [Recovering/Resolving]
  - Off label use [Unknown]

NARRATIVE: CASE EVENT DATE: 20220824
